FAERS Safety Report 17961061 (Version 1)
Quarter: 2020Q2

REPORT INFORMATION
  Report Type: Spontaneous
  Country: US (occurrence: US)
  Receive Date: 20200630
  Receipt Date: 20200630
  Transmission Date: 20200714
  Serious: Yes (Other)
  Sender: FDA-Public Use
  Company Number: US-INDIVIOR EUROPE LIMITED-INDV-124752-2020

PATIENT
  Age: 38 Year
  Sex: Male

DRUGS (1)
  1. SUBLOCADE [Suspect]
     Active Substance: BUPRENORPHINE
     Indication: DRUG DEPENDENCE
     Dosage: 300 MILLIGRAM, QMO(PATIENT RECEIVED THREE DOSES)
     Route: 058
     Dates: start: 202002

REACTIONS (3)
  - Injection site abscess [Recovered/Resolved]
  - Bacterial infection [Unknown]
  - Injection site ulcer [Recovering/Resolving]

NARRATIVE: CASE EVENT DATE: 202002
